FAERS Safety Report 4348118-6 (Version None)
Quarter: 2004Q1

REPORT INFORMATION
  Report Type: 
  Country: None (occurrence: None)
  Receive Date: 20040325
  Receipt Date: 20040210
  Transmission Date: 20041129
  Serious: No
  Sender: FDA-Public Use
  Company Number: USA040258981

PATIENT
  Sex: Female

DRUGS (5)
  1. FORTEO [Suspect]
     Indication: OSTEOPOROSIS
     Dates: start: 20030803
  2. NEXIUM [Concomitant]
  3. CALCIUM [Concomitant]
  4. MIACALCIN [Concomitant]
  5. MULTI-VITAMINS [Concomitant]

REACTIONS (1)
  - BLOOD ALKALINE PHOSPHATASE INCREASED [None]
